FAERS Safety Report 20049766 (Version 3)
Quarter: 2021Q4

REPORT INFORMATION
  Report Type: Report from Study
  Country: CL (occurrence: CL)
  Receive Date: 20211109
  Receipt Date: 20211118
  Transmission Date: 20220303
  Serious: Yes (Life-Threatening)
  Sender: FDA-Public Use
  Company Number: CL-009507513-1805CHL004319

PATIENT
  Age: 57 Year
  Sex: Female
  Weight: 63.3 kg

DRUGS (13)
  1. PEMBROLIZUMAB [Suspect]
     Active Substance: PEMBROLIZUMAB
     Indication: Small cell lung cancer extensive stage
     Dosage: 200 MILLIGRAM, Q3W
     Route: 042
     Dates: start: 20180122, end: 20180417
  2. PEMBROLIZUMAB [Suspect]
     Active Substance: PEMBROLIZUMAB
     Dosage: 200 MILLIGRAM, Q3W
     Route: 042
     Dates: start: 20180508, end: 20180508
  3. ETOPOSIDE [Suspect]
     Active Substance: ETOPOSIDE
     Indication: Small cell lung cancer extensive stage
     Dosage: UNK
     Route: 042
     Dates: start: 20180122, end: 20180328
  4. ETOPOSIDE [Suspect]
     Active Substance: ETOPOSIDE
     Dosage: UNK
     Route: 042
     Dates: start: 20180329, end: 20180329
  5. CISPLATIN [Suspect]
     Active Substance: CISPLATIN
     Indication: Small cell lung cancer extensive stage
     Dosage: UNK
     Route: 042
     Dates: start: 20180122, end: 20180307
  6. CISPLATIN [Suspect]
     Active Substance: CISPLATIN
     Dosage: UNK
     Route: 042
     Dates: start: 20180327, end: 20180327
  7. LEVOTHYROXINE SODIUM [Concomitant]
     Active Substance: LEVOTHYROXINE SODIUM
     Indication: Hypothyroidism
     Dosage: 75 MICROGRAM, QD; FORMULATION: CAPLET
     Route: 048
     Dates: start: 201001
  8. ATENOLOL [Concomitant]
     Active Substance: ATENOLOL
     Indication: Hypertension
     Dosage: 50 MG, QD; FORMULATION: CAPLET
     Route: 048
     Dates: start: 200801
  9. ESOMEPRAZOLE [Concomitant]
     Active Substance: ESOMEPRAZOLE
     Indication: Prophylaxis
     Dosage: 20 MG, QD; FORMULATION: CAPLET
     Route: 048
     Dates: start: 20171226
  10. METOCLOPRAMIDE [Concomitant]
     Active Substance: METOCLOPRAMIDE
     Indication: Prophylaxis
     Dosage: 10 MG, TID; FORMULATION: CAPLET
     Route: 048
     Dates: start: 20171226
  11. ONDANSETRON [Concomitant]
     Active Substance: ONDANSETRON
     Indication: Prophylaxis
     Dosage: 4 MG DAILY, PRN: FORMULATION: CAPLET
     Route: 048
     Dates: start: 20171226
  12. MAGNATIL [Concomitant]
     Indication: Prophylaxis
     Dosage: 1 TABLET, QD
     Route: 048
     Dates: start: 20180122
  13. OFTAGEN [Concomitant]
     Indication: Conjunctivitis
     Dosage: 1 GTT, TID; FORMULATION: SOLUTION
     Route: 047
     Dates: start: 20180424

REACTIONS (1)
  - Infusion related reaction [Recovered/Resolved]

NARRATIVE: CASE EVENT DATE: 20180508
